FAERS Safety Report 8597905-7 (Version None)
Quarter: 2012Q3

REPORT INFORMATION
  Report Type: 
  Country: None (occurrence: None)
  Receive Date: 20120816
  Receipt Date: 20120606
  Transmission Date: 20120928
  Serious: Yes (Life-Threatening, Hospitalization, Other)
  Sender: FDA-Public Use
  Company Number: TR-BAYER-2012-083549

PATIENT
  Age: 64 Year
  Sex: Male

DRUGS (4)
  1. ERTAPENEM [Concomitant]
     Indication: PROSTATITIS
     Dosage: DAILY DOSE 1 G
  2. COUMADIN [Concomitant]
  3. CIPROFLOXACIN HCL [Suspect]
     Indication: ANTIBIOTIC PROPHYLAXIS
     Dosage: 500 MG, BID
  4. LEVOFLOXACIN [Suspect]
     Indication: URINARY TRACT INFECTION

REACTIONS (10)
  - DRUG RESISTANCE [None]
  - URINARY RETENTION [None]
  - HAEMATURIA [None]
  - PROSTATITIS [None]
  - LOSS OF CONSCIOUSNESS [None]
  - PYREXIA [None]
  - CHILLS [None]
  - NAUSEA [None]
  - SEPTIC SHOCK [None]
  - DYSPNOEA [None]
